FAERS Safety Report 14585023 (Version 1)
Quarter: 2018Q1

REPORT INFORMATION
  Report Type: Spontaneous
  Country: FR (occurrence: FR)
  Receive Date: 20180301
  Receipt Date: 20180301
  Transmission Date: 20180509
  Serious: Yes (Hospitalization)
  Sender: FDA-Public Use
  Company Number: FR-CONCORDIA PHARMACEUTICALS INC.-E2B_00010180

PATIENT
  Age: 32 Year
  Sex: Male

DRUGS (3)
  1. SPIFEN 400 MG, COMPRIME PELLICULE [Suspect]
     Active Substance: IBUPROFEN
     Indication: TOOTHACHE
     Route: 048
     Dates: start: 20180101, end: 20180101
  2. SPIFEN 400 MG, COMPRIME PELLICULE [Suspect]
     Active Substance: IBUPROFEN
     Indication: TOOTHACHE
     Dosage: NP
     Route: 048
     Dates: start: 20180107, end: 20180107
  3. PREDNISOLONE. [Suspect]
     Active Substance: PREDNISOLONE
     Indication: TOOTHACHE
     Dosage: NP
     Route: 048
     Dates: start: 20180102, end: 20180106

REACTIONS (2)
  - Melaena [Recovered/Resolved]
  - Haematemesis [Recovered/Resolved]

NARRATIVE: CASE EVENT DATE: 20180108
